FAERS Safety Report 15226975 (Version 1)
Quarter: 2018Q3

REPORT INFORMATION
  Report Type: Spontaneous
  Country: PL (occurrence: PL)
  Receive Date: 20180801
  Receipt Date: 20180801
  Transmission Date: 20181010
  Serious: Yes (Hospitalization, Other)
  Sender: FDA-Public Use
  Company Number: PHHY2018PL056720

PATIENT
  Age: 50 Year
  Sex: Male

DRUGS (13)
  1. RISPERIDONE. [Suspect]
     Active Substance: RISPERIDONE
     Dosage: 37.5 MG, Q2W
     Route: 065
  2. QUETIAPINE. [Suspect]
     Active Substance: QUETIAPINE
     Indication: PSYCHOTIC DISORDER
     Dosage: 500 MG, QD
     Route: 065
     Dates: start: 2012
  3. AMISULPRIDE [Suspect]
     Active Substance: AMISULPRIDE
     Indication: AGGRESSION
     Dosage: 400 MG, QD
     Route: 065
  4. RISPERIDONE. [Suspect]
     Active Substance: RISPERIDONE
     Dosage: 5 MG, QD
     Route: 065
     Dates: start: 2012
  5. OLANZAPINE. [Suspect]
     Active Substance: OLANZAPINE
     Indication: PRODUCT USED FOR UNKNOWN INDICATION
     Dosage: 405 MG, MONTHLY
     Route: 065
     Dates: start: 2016
  6. HALOPERIDOL. [Suspect]
     Active Substance: HALOPERIDOL
     Indication: AGGRESSION
     Dosage: 11 MG, QD
     Route: 065
  7. HALOPERIDOL. [Suspect]
     Active Substance: HALOPERIDOL
     Dosage: 50 MG, QW
     Route: 030
     Dates: start: 201509
  8. RISPERIDONE. [Suspect]
     Active Substance: RISPERIDONE
     Dosage: 25 MG, UNK
     Route: 030
  9. OLANZAPINE. [Suspect]
     Active Substance: OLANZAPINE
     Dosage: 20 MG, QD
     Route: 065
  10. HALOPERIDOL. [Suspect]
     Active Substance: HALOPERIDOL
     Dosage: 100 MG,
     Route: 030
     Dates: start: 2016
  11. HALOPERIDOL. [Suspect]
     Active Substance: HALOPERIDOL
     Dosage: 4 MG, QD
     Route: 065
  12. HALOPERIDOL. [Suspect]
     Active Substance: HALOPERIDOL
     Dosage: 100 MG, Q2W
     Route: 030
     Dates: start: 2015
  13. RISPERIDONE. [Suspect]
     Active Substance: RISPERIDONE
     Indication: PSYCHOTIC DISORDER
     Dosage: 50 MG, Q2W
     Route: 030
     Dates: start: 201509

REACTIONS (9)
  - Mental impairment [Recovering/Resolving]
  - Patient uncooperative [Recovering/Resolving]
  - Therapeutic response decreased [Recovering/Resolving]
  - Restlessness [Recovering/Resolving]
  - Intentional dose omission [Recovered/Resolved]
  - Delusion of reference [Recovering/Resolving]
  - Aggression [Recovering/Resolving]
  - Off label use [Unknown]
  - Drug ineffective [Unknown]

NARRATIVE: CASE EVENT DATE: 201509
